FAERS Safety Report 12342307 (Version 1)
Quarter: 2016Q2

REPORT INFORMATION
  Report Type: Spontaneous
  Country: US (occurrence: US)
  Receive Date: 20160506
  Receipt Date: 20160506
  Transmission Date: 20160815
  Serious: No
  Sender: FDA-Public Use
  Company Number: US-PFIZER INC-2016215382

PATIENT
  Age: 68 Year
  Sex: Female

DRUGS (2)
  1. NARDIL [Suspect]
     Active Substance: PHENELZINE SULFATE
     Indication: PANIC DISORDER
     Dosage: 45 MG, DAILY, 15 MG TABLET, THREE TABLETS A DAY
     Route: 048
  2. LORAZEPAM. [Concomitant]
     Active Substance: LORAZEPAM
     Indication: ANXIETY
     Dosage: 3 MG, 1X/DAY

REACTIONS (3)
  - Weight decreased [Unknown]
  - Nervousness [Unknown]
  - Dysphagia [Unknown]
